FAERS Safety Report 4402796-1 (Version None)
Quarter: 2004Q3

REPORT INFORMATION
  Report Type: 
  Country: None (occurrence: None)
  Receive Date: 20040721
  Receipt Date: 20031230
  Transmission Date: 20050211
  Serious: No
  Sender: FDA-Public Use
  Company Number: US-BRISTOL-MYERS SQUIBB COMPANY-12466736

PATIENT
  Age: 3 Decade
  Sex: Male

DRUGS (3)
  1. ZERIT [Suspect]
     Indication: EXPOSURE TO COMMUNICABLE DISEASE
     Route: 048
     Dates: start: 20031224
  2. CRIXIVAN [Concomitant]
     Indication: EXPOSURE TO COMMUNICABLE DISEASE
     Dates: start: 20031224
  3. 3TC [Concomitant]
     Indication: EXPOSURE TO COMMUNICABLE DISEASE
     Dates: start: 20031224

REACTIONS (1)
  - NIGHTMARE [None]
